FAERS Safety Report 7439595-2 (Version None)
Quarter: 2011Q2

REPORT INFORMATION
  Report Type: 
  Country: None (occurrence: None)
  Receive Date: 20110427
  Receipt Date: 20100225
  Transmission Date: 20111010
  Serious: No
  Sender: FDA-Public Use
  Company Number: US-BAYER-201015855NA

PATIENT
  Age: 28 Year
  Sex: Female

DRUGS (2)
  1. YAZ [Suspect]
     Indication: CONTRACEPTION
     Dosage: UNK
     Dates: start: 20080101, end: 20100101
  2. YAZ [Suspect]
     Dosage: UNK
     Dates: start: 20100214

REACTIONS (3)
  - NAUSEA [None]
  - UTERINE PAIN [None]
  - BACK PAIN [None]
